FAERS Safety Report 8777474 (Version 2)
Quarter: 2012Q4

REPORT INFORMATION
  Report Type: Report from Study
  Country: DE (occurrence: DE)
  Receive Date: 20120911
  Receipt Date: 20121107
  Transmission Date: 20130627
  Serious: Yes (Other)
  Sender: FDA-Public Use
  Company Number: DE-CELGENEUS-062-21880-12072341

PATIENT
  Age: 70 Year
  Sex: Female
  Weight: 61 kg

DRUGS (5)
  1. REVLIMID [Suspect]
     Indication: MULTIPLE MYELOMA
     Dosage: 20 Milligram
     Route: 048
     Dates: start: 20110912, end: 20120320
  2. REVLIMID [Suspect]
     Dosage: 20 Milligram
     Route: 048
     Dates: start: 20120928
  3. METOPROLOL [Concomitant]
     Indication: HYPERTENSION ARTERIAL
     Route: 065
  4. IOSARTAN [Concomitant]
     Indication: HYPERTENSION ARTERIAL
     Route: 065
  5. FLUOXETINE [Concomitant]
     Indication: MENTAL DISORDER
     Route: 065

REACTIONS (1)
  - Pancytopenia [Recovered/Resolved]
